FAERS Safety Report 11088906 (Version 1)
Quarter: 2015Q2

REPORT INFORMATION
  Report Type: Spontaneous
  Country: US (occurrence: US)
  Receive Date: 20150504
  Receipt Date: 20150504
  Transmission Date: 20150821
  Serious: No
  Sender: FDA-Public Use
  Company Number: US-BIOMARINAP-US-2014-104738

PATIENT
  Age: 19 Year
  Sex: Male

DRUGS (3)
  1. ALDURAZYME [Suspect]
     Active Substance: LARONIDASE
     Indication: MUCOPOLYSACCHARIDOSIS I
     Dosage: .58 MG/KG, QW
     Route: 041
     Dates: start: 2004, end: 201408
  2. ALDURAZYME [Suspect]
     Active Substance: LARONIDASE
     Dosage: 0.99 MG/KG, QW
     Route: 041
     Dates: start: 20140828, end: 20140828
  3. ALDURAZYME [Suspect]
     Active Substance: LARONIDASE
     Dosage: .58 MG/KG, QW
     Route: 041

REACTIONS (1)
  - Incorrect dose administered [Unknown]

NARRATIVE: CASE EVENT DATE: 20140828
